FAERS Safety Report 8781769 (Version 1)
Quarter: 2012Q4

REPORT INFORMATION
  Report Type: 
  Country: US (occurrence: US)
  Receive Date: 20120913
  Receipt Date: 20120913
  Transmission Date: 20130627
  Serious: No
  Sender: FDA-Public Use
  Company Number: US-PFIZER INC-2012223532

PATIENT
  Age: 67 Year
  Sex: Female
  Weight: 57.6 kg

DRUGS (7)
  1. TOVIAZ [Suspect]
     Indication: URINARY INCONTINENCE
     Dosage: 4 mg, 1x/day
     Route: 048
     Dates: start: 201208, end: 20120904
  2. AMOXICILLIN [Suspect]
     Indication: TOOTH ABSCESS
     Dosage: UNK, 2x/day
     Route: 048
     Dates: start: 20120822, end: 20120827
  3. ATENOLOL [Concomitant]
     Indication: MITRAL VALVE PROLAPSE
     Dosage: UNK
  4. HYDROCHLOROTHIAZIDE [Concomitant]
     Indication: MITRAL VALVE PROLAPSE
     Dosage: UNK
  5. LEVOXYL [Concomitant]
     Indication: THYROID DISORDER
     Dosage: UNK
  6. POTASSIUM [Concomitant]
     Dosage: UNK
  7. ASPIRIN [Concomitant]
     Dosage: UNK

REACTIONS (1)
  - Rash generalised [Not Recovered/Not Resolved]
